FAERS Safety Report 6251750-6 (Version None)
Quarter: 2009Q2

REPORT INFORMATION
  Report Type: 
  Country: None (occurrence: None)
  Receive Date: 20090630
  Receipt Date: 20090623
  Transmission Date: 20091009
  Serious: Yes (Other)
  Sender: FDA-Public Use
  Company Number: PHHY2009ES25014

PATIENT
  Age: 52 Year
  Sex: Female

DRUGS (6)
  1. GLEEVEC [Suspect]
     Indication: CHRONIC MYELOID LEUKAEMIA
     Dosage: 400 MG/DAY
     Route: 048
     Dates: start: 20080701
  2. OMEPRAZOL [Concomitant]
     Indication: PROPHYLAXIS
     Dosage: 2 MG/DAY
     Route: 048
     Dates: start: 20080701
  3. CALCIUM-SANDOZ FORTE [Concomitant]
     Dosage: 1 G/DAY
     Route: 048
  4. MAGNOGENE [Concomitant]
  5. POTASSIUM CHLORIDE [Concomitant]
     Dosage: UNK
     Dates: start: 20080701
  6. SEGURIL [Concomitant]
     Indication: OEDEMA
     Dosage: UNK
     Dates: start: 20080701

REACTIONS (1)
  - VENTRICULAR EXTRASYSTOLES [None]
